FAERS Safety Report 7815153-2 (Version None)
Quarter: 2011Q4

REPORT INFORMATION
  Report Type: 
  Country: None (occurrence: None)
  Receive Date: 20111003
  Receipt Date: 20110922
  Transmission Date: 20120403
  Serious: Yes (Life-Threatening, Hospitalization, Other)
  Sender: FDA-Public Use
  Company Number: 2011029448

PATIENT
  Sex: Female
  Weight: 95.2554 kg

DRUGS (9)
  1. ZYRTEC [Concomitant]
  2. VITAMIN D [Concomitant]
  3. BERINERT [Suspect]
     Indication: HEREDITARY ANGIOEDEMA
     Dosage: SEE IMAGE
     Route: 042
     Dates: start: 20110622
  4. BERINERT [Suspect]
     Indication: HEREDITARY ANGIOEDEMA
     Dosage: SEE IMAGE
     Route: 042
     Dates: start: 20110712
  5. PEPCID [Concomitant]
  6. SUDAFED 12 HOUR [Concomitant]
  7. BENADRYL [Concomitant]
  8. ACETAMINOPHEN [Concomitant]
  9. VICODIN [Concomitant]

REACTIONS (11)
  - ANAEMIA [None]
  - SUBCLAVIAN VEIN THROMBOSIS [None]
  - RESPIRATORY ARREST [None]
  - MUNCHAUSEN'S SYNDROME [None]
  - FIBRIN D DIMER INCREASED [None]
  - ANGIOEDEMA [None]
  - FACTITIOUS DISORDER [None]
  - DEEP VEIN THROMBOSIS [None]
  - PROTHROMBIN TIME SHORTENED [None]
  - JUGULAR VEIN THROMBOSIS [None]
  - AXILLARY VEIN THROMBOSIS [None]
